FAERS Safety Report 20966979 (Version 1)
Quarter: 2022Q2

REPORT INFORMATION
  Report Type: Spontaneous
  Country: ES (occurrence: ES)
  Receive Date: 20220616
  Receipt Date: 20220616
  Transmission Date: 20220720
  Serious: Yes (Other)
  Sender: FDA-Public Use
  Company Number: ES-MYLANLABS-2022M1045729

PATIENT
  Age: 38 Year
  Sex: Female

DRUGS (5)
  1. IBUPROFEN [Suspect]
     Active Substance: IBUPROFEN
     Indication: Eagle^s syndrome
     Dosage: UNK
  2. IBUPROFEN [Suspect]
     Active Substance: IBUPROFEN
     Indication: Ear pain
  3. METAMIZOLE [Suspect]
     Active Substance: METAMIZOLE
     Indication: Eagle^s syndrome
     Dosage: UNK
  4. METAMIZOLE [Suspect]
     Active Substance: METAMIZOLE
     Indication: Ear pain
  5. BROMAZEPAM [Concomitant]
     Active Substance: BROMAZEPAM
     Indication: Generalised anxiety disorder
     Dosage: UNK

REACTIONS (1)
  - Drug ineffective [Unknown]
